FAERS Safety Report 9234481 (Version 2)
Quarter: 2013Q2

REPORT INFORMATION
  Report Type: Spontaneous
  Country: MX (occurrence: MX)
  Receive Date: 20130416
  Receipt Date: 20130612
  Transmission Date: 20140414
  Serious: Yes (Death)
  Sender: FDA-Public Use
  Company Number: MX-GLAXOSMITHKLINE-A1020117A

PATIENT
  Sex: Male

DRUGS (5)
  1. PAXIL [Suspect]
     Indication: PRODUCT USED FOR UNKNOWN INDICATION
     Route: 065
     Dates: start: 2007
  2. ISOSORBIDE [Concomitant]
  3. ANGIOTROFIN [Concomitant]
  4. CRESTOR [Concomitant]
  5. ZYLOPRIM [Concomitant]

REACTIONS (5)
  - Myocardial infarction [Fatal]
  - Appendicitis [Unknown]
  - Appendicectomy [Unknown]
  - Cardiovascular disorder [Unknown]
  - Arterial disorder [Unknown]
